FAERS Safety Report 4801920-6 (Version None)
Quarter: 2005Q4

REPORT INFORMATION
  Report Type: 
  Country: None (occurrence: None)
  Receive Date: 20051012
  Receipt Date: 20050928
  Transmission Date: 20060501
  Serious: Yes (Death, Life-Threatening, Hospitalization)
  Sender: FDA-Public Use
  Company Number: P200500017

PATIENT
  Age: 78 Year
  Sex: Male

DRUGS (14)
  1. PLENAXIS [Suspect]
     Indication: PROSTATE CANCER
     Dosage: 100 MG, SINGLE, INTRAMUSCULAR
     Route: 030
     Dates: start: 20050516, end: 20050516
  2. FUROSEMIDE [Concomitant]
  3. BENAZEPRIL HCL [Concomitant]
  4. ATENOLOL [Concomitant]
  5. ZOCOR [Concomitant]
  6. POTASSIUM (POTASSIUM) [Concomitant]
  7. TYLENOL WITH CODEINE (PARACETAMOL, CODEINE PHOSPHATE) [Concomitant]
  8. ZYRTEC [Concomitant]
  9. MULTIVITAMIN [Concomitant]
  10. MILK OF MAGNESIA TAB [Concomitant]
  11. OXYCONTIN [Concomitant]
  12. LUPRO (LEUPRORELIN ACETATE) [Concomitant]
  13. CASODEX [Concomitant]
  14. ACETYLSALICYLIC ACID SRT [Concomitant]

REACTIONS (19)
  - ACUTE MYOCARDIAL INFARCTION [None]
  - BLOOD ALBUMIN DECREASED [None]
  - BLOOD ALKALINE PHOSPHATASE INCREASED [None]
  - BLOOD GLUCOSE INCREASED [None]
  - BLOOD PH DECREASED [None]
  - BLOOD POTASSIUM INCREASED [None]
  - BLOOD PRESSURE INCREASED [None]
  - CARDIAC FAILURE CONGESTIVE [None]
  - DYSPNOEA [None]
  - HYPOTENSION [None]
  - HYPOXIA [None]
  - LETHARGY [None]
  - LOSS OF CONSCIOUSNESS [None]
  - PCO2 INCREASED [None]
  - PNEUMOTHORAX [None]
  - PROTEIN TOTAL DECREASED [None]
  - PULMONARY OEDEMA [None]
  - REFUSAL OF TREATMENT BY PATIENT [None]
  - SINUS TACHYCARDIA [None]
